FAERS Safety Report 7555929-2 (Version None)
Quarter: 2011Q2

REPORT INFORMATION
  Report Type: 
  Country: None (occurrence: None)
  Receive Date: 20110618
  Receipt Date: 20110606
  Transmission Date: 20111010
  Serious: Yes (Hospitalization)
  Sender: FDA-Public Use
  Company Number: US-ELI_LILLY_AND_COMPANY-US201106002017

PATIENT
  Sex: Female

DRUGS (18)
  1. SYNTHROID [Concomitant]
  2. LOTENSIN [Concomitant]
  3. FORTEO [Suspect]
     Indication: OSTEOPOROSIS
     Dosage: 20 UG, QD
     Dates: start: 20110401
  4. NOVOLOG [Concomitant]
     Dosage: 10 IU, TID
  5. LEVEMIR [Concomitant]
     Dosage: 40 IU, QD
  6. ASPIRIN [Concomitant]
     Dosage: 81 MG, UNK
  7. AMLODIPINE [Concomitant]
  8. ATARAX [Concomitant]
     Dosage: UNK UNK, PRN
  9. PEPCID [Concomitant]
  10. LASIX [Concomitant]
  11. CALCIUM CARBONATE [Concomitant]
     Indication: MINERAL SUPPLEMENTATION
     Dosage: UNK
  12. IMDUR [Concomitant]
  13. METANX [Concomitant]
  14. POTASSIUM [Concomitant]
  15. MULTI-VITAMIN [Concomitant]
  16. PHENERGAN HCL [Concomitant]
     Dosage: UNK UNK, PRN
  17. VITAMIN D [Concomitant]
     Dosage: 50000 IU, WEEKLY (1/W)
  18. NORVASC [Concomitant]

REACTIONS (3)
  - BLOOD PRESSURE INCREASED [None]
  - RECTAL HAEMORRHAGE [None]
  - HEART RATE DECREASED [None]
